FAERS Safety Report 5641827-8 (Version None)
Quarter: 2008Q1

REPORT INFORMATION
  Report Type: 
  Country: None (occurrence: None)
  Receive Date: 20080227
  Receipt Date: 20080215
  Transmission Date: 20080703
  Serious: Yes (Other)
  Sender: FDA-Public Use
  Company Number: NO-PFIZER INC-2008015065

PATIENT
  Age: 46 Year
  Sex: Female

DRUGS (3)
  1. LYRICA [Suspect]
     Indication: ANXIETY
     Route: 048
     Dates: start: 20080201, end: 20080201
  2. PAROXETINE HCL [Concomitant]
     Indication: PANIC DISORDER
     Route: 048
  3. PAROXETINE HCL [Concomitant]
     Indication: GENERALISED ANXIETY DISORDER

REACTIONS (4)
  - DIZZINESS [None]
  - DRY MOUTH [None]
  - PANIC DISORDER [None]
  - RESTLESSNESS [None]
